FAERS Safety Report 14257393 (Version 2)
Quarter: 2020Q2

REPORT INFORMATION
  Report Type: Report from Study
  Country: None (occurrence: DE)
  Receive Date: 20171207
  Receipt Date: 20200521
  Transmission Date: 20200713
  Serious: Yes (Other)
  Sender: FDA-Public Use
  Company Number: DE-ABBVIE-17K-062-2179911-00

PATIENT
  Age: 28 Year
  Sex: Female
  Weight: 78 kg

DRUGS (6)
  1. HUMIRA [Suspect]
     Active Substance: ADALIMUMAB
     Route: 058
     Dates: start: 2017, end: 2017
  2. HUMIRA [Suspect]
     Active Substance: ADALIMUMAB
     Route: 058
     Dates: end: 201808
  3. REMICADE [Concomitant]
     Active Substance: INFLIXIMAB
     Indication: PRODUCT USED FOR UNKNOWN INDICATION
  4. VITAMIN D [Concomitant]
     Active Substance: VITAMIN D NOS
     Indication: PRODUCT USED FOR UNKNOWN INDICATION
     Dates: start: 201706
  5. IRON [Concomitant]
     Active Substance: IRON
     Indication: PRODUCT USED FOR UNKNOWN INDICATION
     Dates: start: 201706
  6. HUMIRA [Suspect]
     Active Substance: ADALIMUMAB
     Indication: CROHN^S DISEASE
     Route: 058
     Dates: start: 20170424, end: 2017

REACTIONS (12)
  - Nasal obstruction [Unknown]
  - Deafness [Unknown]
  - Drug ineffective [Not Recovered/Not Resolved]
  - Auditory nerve disorder [Not Recovered/Not Resolved]
  - Wound secretion [Recovering/Resolving]
  - Oral herpes [Not Recovered/Not Resolved]
  - Herpes virus infection [Recovered/Resolved]
  - Rhinorrhoea [Unknown]
  - Nasal herpes [Recovered/Resolved]
  - Genital lesion [Recovering/Resolving]
  - Crohn^s disease [Unknown]
  - Feeling abnormal [Recovered/Resolved]

NARRATIVE: CASE EVENT DATE: 2017
